FAERS Safety Report 5327791-X (Version None)
Quarter: 2007Q2

REPORT INFORMATION
  Report Type: 
  Country: None (occurrence: None)
  Receive Date: 20070226
  Receipt Date: 20061117
  Transmission Date: 20071010
  Serious: Yes (Life-Threatening, Hospitalization)
  Sender: FDA-Public Use
  Company Number: WAES 0611USA05675

PATIENT
  Sex: Female

DRUGS (4)
  1. VYTORIN [Suspect]
     Indication: BLOOD CHOLESTEROL INCREASED
     Dosage: PO
     Route: 048
     Dates: end: 20061101
  2. ALCOHOL [Concomitant]
  3. DIURETIC [Concomitant]
  4. VERAPAMIL [Concomitant]

REACTIONS (3)
  - CELL DEATH [None]
  - EJECTION FRACTION DECREASED [None]
  - HEPATIC ENZYME INCREASED [None]
